FAERS Safety Report 6582111-8 (Version None)
Quarter: 2010Q1

REPORT INFORMATION
  Report Type: 
  Country: None (occurrence: None)
  Receive Date: 20100212
  Receipt Date: 20100212
  Transmission Date: 20100710
  Serious: Yes (Hospitalization)
  Sender: FDA-Public Use
  Company Number: None

PATIENT
  Sex: Male
  Weight: 105.5 kg

DRUGS (2)
  1. CARBOPLATIN [Suspect]
     Dosage: 3490 MG
  2. TAXOL [Suspect]
     Dosage: 1000 MG

REACTIONS (3)
  - DEHYDRATION [None]
  - HAEMOGLOBIN DECREASED [None]
  - THROMBOCYTOPENIA [None]
